FAERS Safety Report 9756074 (Version 2)
Quarter: 2013Q4

REPORT INFORMATION
  Report Type: Report from Study
  Country: US (occurrence: US)
  Receive Date: 20131213
  Receipt Date: 20131217
  Transmission Date: 20140711
  Serious: Yes (Death)
  Sender: FDA-Public Use
  Company Number: US-GLAXOSMITHKLINE-B0951322A

PATIENT
  Age: 54 Year
  Sex: Male
  Weight: 94.5 kg

DRUGS (13)
  1. FLUTICASONE FUROATE [Suspect]
     Indication: CHRONIC OBSTRUCTIVE PULMONARY DISEASE
     Dates: start: 20120409, end: 20120707
  2. OXYCONTIN [Concomitant]
     Indication: BACK PAIN
     Dosage: 30MG THREE TIMES PER DAY
     Route: 048
     Dates: start: 2010
  3. SOMA [Concomitant]
     Indication: BACK PAIN
     Dosage: 350MG THREE TIMES PER DAY
     Route: 048
     Dates: start: 2006
  4. NEXIUM [Concomitant]
     Indication: GASTROOESOPHAGEAL REFLUX DISEASE
     Dosage: 40MG PER DAY
     Route: 048
     Dates: start: 2007
  5. METFORMIN [Concomitant]
     Indication: TYPE 2 DIABETES MELLITUS
     Dosage: 500MG TWICE PER DAY
     Route: 048
     Dates: start: 2009
  6. HUMALOG [Concomitant]
     Indication: TYPE 2 DIABETES MELLITUS
     Dosage: 15IU PER DAY
     Route: 030
     Dates: start: 2003
  7. LANTUS [Concomitant]
     Indication: TYPE 2 DIABETES MELLITUS
     Dosage: 90IU PER DAY
     Route: 030
     Dates: start: 2003
  8. LUNESTA [Concomitant]
     Indication: SLEEP APNOEA SYNDROME
     Route: 048
     Dates: start: 2011
  9. GABAPENTIN [Concomitant]
     Indication: DIABETIC NEUROPATHY
     Dosage: 600MG TWICE PER DAY
     Route: 048
     Dates: start: 201201
  10. VIAGRA [Concomitant]
     Indication: ERECTILE DYSFUNCTION
     Route: 048
     Dates: start: 2011
  11. LISINOPRIL [Concomitant]
     Indication: HYPERTENSION
     Dosage: 20MG PER DAY
     Route: 048
     Dates: start: 20120714
  12. HYDROXYZINE [Concomitant]
     Indication: DERMATITIS
     Route: 048
     Dates: start: 20120202
  13. OXYGEN [Concomitant]
     Indication: CHRONIC OBSTRUCTIVE PULMONARY DISEASE
     Route: 055
     Dates: start: 2008

REACTIONS (1)
  - Death [Fatal]
